FAERS Safety Report 25009365 (Version 3)
Quarter: 2025Q2

REPORT INFORMATION
  Report Type: Spontaneous
  Country: US (occurrence: US)
  Receive Date: 20250225
  Receipt Date: 20250624
  Transmission Date: 20250716
  Serious: Yes (Other)
  Sender: PFIZER
  Company Number: US-PFIZER INC-202500041511

PATIENT
  Age: 73 Year
  Sex: Female

DRUGS (9)
  1. XELJANZ XR [Suspect]
     Active Substance: TOFACITINIB CITRATE
     Indication: Rheumatoid arthritis
     Dosage: 11 MG, 1X/DAY (TAKE 1 (ONE) TABLET DAILY)
     Route: 048
  2. XELJANZ XR [Suspect]
     Active Substance: TOFACITINIB CITRATE
  3. PREDNISONE [Concomitant]
     Active Substance: PREDNISONE
  4. AZELASTINE [Concomitant]
     Active Substance: AZELASTINE
  5. BUDESONIDE [Concomitant]
     Active Substance: BUDESONIDE
  6. CALCIUM [Concomitant]
     Active Substance: CALCIUM
  7. MELOXICAM [Concomitant]
     Active Substance: MELOXICAM
  8. THYROID [Concomitant]
     Active Substance: LEVOTHYROXINE\LIOTHYRONINE
  9. LEFLUNOMIDE [Concomitant]
     Active Substance: LEFLUNOMIDE

REACTIONS (9)
  - Rheumatoid arthritis [Unknown]
  - Blindness unilateral [Unknown]
  - Corneal transplant [Recovering/Resolving]
  - Dizziness [Unknown]
  - Hypoaesthesia [Unknown]
  - Back pain [Unknown]
  - Nerve compression [Unknown]
  - Cough [Unknown]
  - Condition aggravated [Unknown]
